FAERS Safety Report 18496654 (Version 1)
Quarter: 2020Q4

REPORT INFORMATION
  Report Type: Spontaneous
  Country: US (occurrence: US)
  Receive Date: 20201112
  Receipt Date: 20201112
  Transmission Date: 20210114
  Serious: No
  Sender: FDA-Public Use
  Company Number: None

PATIENT
  Age: 34 Year
  Sex: Male
  Weight: 84.47 kg

DRUGS (1)
  1. GUANFACINE. [Suspect]
     Active Substance: GUANFACINE
     Route: 048
     Dates: start: 20201002

REACTIONS (4)
  - Blood pressure systolic decreased [None]
  - Blood pressure diastolic decreased [None]
  - Dizziness postural [None]
  - Therapy change [None]

NARRATIVE: CASE EVENT DATE: 20201004
